FAERS Safety Report 11059204 (Version 1)
Quarter: 2015Q2

REPORT INFORMATION
  Report Type: Spontaneous
  Country: US (occurrence: None)
  Receive Date: 20150420
  Receipt Date: 20150420
  Transmission Date: 20150821
  Serious: No
  Sender: FDA-Public Use
  Company Number: AEGR001102

PATIENT
  Age: 64 Year
  Sex: Female
  Weight: 81.6 kg

DRUGS (15)
  1. METFORMIN [Concomitant]
     Active Substance: METFORMIN HYDROCHLORIDE
  2. ELAVIL [Concomitant]
     Active Substance: AMITRIPTYLINE HYDROCHLORIDE
  3. JUXTAPID [Suspect]
     Active Substance: LOMITAPIDE MESYLATE
     Indication: TYPE IIA HYPERLIPIDAEMIA
     Route: 048
     Dates: start: 20141229
  4. GLIMEPIRIDE. [Concomitant]
     Active Substance: GLIMEPIRIDE
  5. OSCAL 500+D (CALCIUM CARBONATE, ERGOCALCIFEROL) [Concomitant]
  6. OMEGA-3 FATTY ACIDS [Concomitant]
     Active Substance: OMEGA-3 FATTY ACIDS
  7. ASPIRIN (ACETYLSALICYLIC ACID) [Concomitant]
     Active Substance: ASPIRIN
  8. NIASPAN (NICOTINIC ACID) [Concomitant]
  9. LISINOPRIL. [Concomitant]
     Active Substance: LISINOPRIL
  10. WELLBUTRIN [Concomitant]
     Active Substance: BUPROPION HYDROCHLORIDE
  11. OMEGA 3 FISH OIL (FISH OIL) [Concomitant]
     Active Substance: OMEGA-3 FATTY ACIDS
  12. COLESTID (COLESTIPOL HYDROCHLORIDE) [Concomitant]
  13. CELEXA [Concomitant]
     Active Substance: CITALOPRAM HYDROBROMIDE
  14. VENTOLIN HFA [Concomitant]
     Active Substance: ALBUTEROL SULFATE
  15. ZETIA [Concomitant]
     Active Substance: EZETIMIBE

REACTIONS (2)
  - Dyspepsia [None]
  - Weight decreased [None]

NARRATIVE: CASE EVENT DATE: 201412
